FAERS Safety Report 24818764 (Version 2)
Quarter: 2025Q1

REPORT INFORMATION
  Report Type: Spontaneous
  Country: US (occurrence: US)
  Receive Date: 20250108
  Receipt Date: 20250206
  Transmission Date: 20250409
  Serious: No
  Sender: LEO PHARM
  Company Number: US-LEO Pharma-376663

PATIENT
  Age: 53 Year
  Sex: Female

DRUGS (1)
  1. ADBRY [Suspect]
     Active Substance: TRALOKINUMAB-LDRM
     Dosage: TREATMENT IS ONGOING
     Route: 058
     Dates: start: 202410

REACTIONS (2)
  - Injection site swelling [Recovered/Resolved]
  - Injection site mass [Recovered/Resolved]
